FAERS Safety Report 10674026 (Version 1)
Quarter: 2014Q4

REPORT INFORMATION
  Report Type: Spontaneous
  Country: US (occurrence: None)
  Receive Date: 20141223
  Receipt Date: 20141223
  Transmission Date: 20150529
  Serious: Yes (Hospitalization)
  Sender: FDA-Public Use
  Company Number: None

PATIENT
  Age: 83 Year
  Sex: Female
  Weight: 81.65 kg

DRUGS (9)
  1. BENICAR [Concomitant]
     Active Substance: OLMESARTAN MEDOXOMIL
  2. TRAMADOL FOR ARTHRITS PAIN [Concomitant]
  3. ZOLPIDEM [Suspect]
     Active Substance: ZOLPIDEM\ZOLPIDEM TARTRATE
     Indication: INSOMNIA
     Route: 048
     Dates: end: 20140811
  4. CALCIUM [Concomitant]
     Active Substance: CALCIUM
  5. SIMVASTATIN. [Concomitant]
     Active Substance: SIMVASTATIN
  6. ASPIRIN. [Concomitant]
     Active Substance: ASPIRIN
  7. ADVIL [Concomitant]
     Active Substance: IBUPROFEN
  8. DILTIAZEM [Concomitant]
     Active Substance: DILTIAZEM
  9. VITAMINS [Concomitant]
     Active Substance: VITAMINS

REACTIONS (2)
  - Hallucination [None]
  - Fall [None]

NARRATIVE: CASE EVENT DATE: 20140812
